FAERS Safety Report 12057458 (Version 1)
Quarter: 2016Q1

REPORT INFORMATION
  Report Type: Spontaneous
  Country: FR (occurrence: FR)
  Receive Date: 20160209
  Receipt Date: 20160209
  Transmission Date: 20160526
  Serious: Yes (Life-Threatening, Hospitalization)
  Sender: FDA-Public Use
  Company Number: FR-ABBVIE-16P-056-1556851-00

PATIENT
  Age: 62 Year
  Sex: Male

DRUGS (3)
  1. ANAFRANIL [Suspect]
     Active Substance: CLOMIPRAMINE HYDROCHLORIDE
     Indication: PRODUCT USED FOR UNKNOWN INDICATION
     Dosage: 40 DOSAGE FORM, TOTAL
     Route: 048
     Dates: start: 20151209, end: 20151209
  2. DEPAKOTE [Suspect]
     Active Substance: DIVALPROEX SODIUM
     Indication: PRODUCT USED FOR UNKNOWN INDICATION
     Dosage: 30 DOSAGE FORM; TOTAL
     Route: 048
     Dates: start: 20151209, end: 20151209
  3. SERESTA [Suspect]
     Active Substance: OXAZEPAM
     Indication: PRODUCT USED FOR UNKNOWN INDICATION
     Dosage: 60 DOSAGE FORM; TOTAL
     Route: 048
     Dates: start: 20151209, end: 20151209

REACTIONS (3)
  - Circulatory collapse [Unknown]
  - Hyperammonaemia [Unknown]
  - Coma [Unknown]

NARRATIVE: CASE EVENT DATE: 20151209
